FAERS Safety Report 7824671-2 (Version None)
Quarter: 2011Q4

REPORT INFORMATION
  Report Type: 
  Country: None (occurrence: None)
  Receive Date: 20111018
  Receipt Date: 20111018
  Transmission Date: 20120403
  Serious: Yes (Other)
  Sender: FDA-Public Use
  Company Number: None

PATIENT
  Sex: Male
  Weight: 107 kg

DRUGS (12)
  1. LYRICA [Concomitant]
  2. MULTI-VITAMINS [Concomitant]
  3. LOPRESSOR [Concomitant]
  4. LANTUS [Concomitant]
  5. RAPAMUNE [Concomitant]
  6. LIPITOR [Concomitant]
  7. BELATACEPT 250 MGS/VIAL BRISTOL-MYERS SQUIBB [Suspect]
     Indication: IMMUNOSUPPRESSION
     Dosage: 5 MGS/KG
     Dates: start: 20100603
  8. LEXAPRO [Concomitant]
  9. NEXIUM [Concomitant]
  10. PROCARDIA XL [Concomitant]
  11. ASPIRIN [Concomitant]
  12. LISINOPRIL [Concomitant]

REACTIONS (3)
  - SQUAMOUS CELL CARCINOMA [None]
  - SEBORRHOEIC KERATOSIS [None]
  - MELANOCYTIC NAEVUS [None]
